FAERS Safety Report 8528469-1 (Version None)
Quarter: 2012Q3

REPORT INFORMATION
  Report Type: 
  Country: None (occurrence: None)
  Receive Date: 20120723
  Receipt Date: 20120622
  Transmission Date: 20120928
  Serious: Yes (Other)
  Sender: FDA-Public Use
  Company Number: US-009507513-1206USA01708

PATIENT

DRUGS (2)
  1. PRINIVIL [Suspect]
     Route: 048
  2. AMLODIPINE [Suspect]

REACTIONS (3)
  - MULTIPLE DRUG OVERDOSE [None]
  - SHOCK [None]
  - TOXICITY TO VARIOUS AGENTS [None]
